FAERS Safety Report 9848251 (Version 1)
Quarter: 2014Q1

REPORT INFORMATION
  Report Type: Spontaneous
  Country: US (occurrence: US)
  Receive Date: 20140128
  Receipt Date: 20140128
  Transmission Date: 20141002
  Serious: No
  Sender: FDA-Public Use
  Company Number: US-PFIZER INC-2014023204

PATIENT
  Sex: Male

DRUGS (5)
  1. CHANTIX [Suspect]
     Dosage: UNK
  2. GABAPENTIN [Suspect]
     Dosage: UNK
  3. METRONIDAZOLE [Suspect]
     Dosage: UNK
  4. RIFAMPIN [Suspect]
     Dosage: UNK
  5. SULFAMETHOXAZOLE [Suspect]
     Dosage: UNK

REACTIONS (1)
  - Drug hypersensitivity [Unknown]
